FAERS Safety Report 6496922-0 (Version None)
Quarter: 2009Q4

REPORT INFORMATION
  Report Type: 
  Country: None (occurrence: None)
  Receive Date: 20091215
  Receipt Date: 20091209
  Transmission Date: 20100525
  Serious: Yes (Hospitalization)
  Sender: FDA-Public Use
  Company Number: FR-WYE-G05099609

PATIENT
  Sex: Female

DRUGS (10)
  1. EFFEXOR [Suspect]
     Route: 048
     Dates: start: 19990101, end: 20091107
  2. ESIDRIX [Concomitant]
     Route: 048
     Dates: end: 20091107
  3. PLAVIX [Concomitant]
     Dosage: UNKNOWN
     Route: 048
     Dates: end: 20091107
  4. XANAX [Concomitant]
     Dosage: UNKNOWN
     Route: 048
  5. LOGIMAX [Concomitant]
     Dosage: UNKNOWN
     Route: 048
     Dates: end: 20091107
  6. ZESTRIL [Concomitant]
     Dosage: UNKNOWN
     Route: 048
  7. NOVONORM [Concomitant]
     Dosage: UNKNOWN
     Route: 048
  8. CRESTOR [Concomitant]
     Dosage: UNKNOWN
     Route: 048
  9. LASILIX [Concomitant]
     Route: 048
     Dates: end: 20091107
  10. KARDEGIC [Concomitant]
     Dosage: UNKNOWN
     Dates: end: 20091107

REACTIONS (3)
  - ATRIAL FIBRILLATION [None]
  - CARDIAC FAILURE [None]
  - HYPONATRAEMIA [None]
